FAERS Safety Report 18069726 (Version 2)
Quarter: 2020Q4

REPORT INFORMATION
  Report Type: Report from Study
  Country: BE (occurrence: BE)
  Receive Date: 20200727
  Receipt Date: 20201002
  Transmission Date: 20210113
  Serious: Yes (Other)
  Sender: FDA-Public Use
  Company Number: BE-BEH-2020120262

PATIENT
  Sex: Female

DRUGS (1)
  1. HIZENTRA [Suspect]
     Active Substance: HUMAN IMMUNOGLOBULIN G
     Dosage: 6 GRAM - 30 MILLILITER, ONCE A WEEK
     Route: 058

REACTIONS (2)
  - Dyspnoea [Unknown]
  - Dyspnoea at rest [Unknown]
